FAERS Safety Report 14482715 (Version 3)
Quarter: 2018Q1

REPORT INFORMATION
  Report Type: Report from Study
  Country: BE (occurrence: BE)
  Receive Date: 20180203
  Receipt Date: 20180306
  Transmission Date: 20180509
  Serious: Yes (Hospitalization, Other)
  Sender: FDA-Public Use
  Company Number: BE-TEVA-2018-BE-855698

PATIENT
  Age: 69 Year
  Sex: Male
  Weight: 72 kg

DRUGS (11)
  1. AVASTIN [Suspect]
     Active Substance: BEVACIZUMAB
     Indication: COLORECTAL CANCER METASTATIC
     Route: 042
  2. LEVOLEUCOVORIN. [Suspect]
     Active Substance: LEVOLEUCOVORIN
     Indication: COLORECTAL CANCER METASTATIC
     Route: 042
  3. AUGMENTIN [Concomitant]
     Active Substance: AMOXICILLIN\CLAVULANATE POTASSIUM
     Indication: PROPHYLAXIS
     Route: 065
     Dates: start: 20170920, end: 20170921
  4. FLUOROURACIL. [Suspect]
     Active Substance: FLUOROURACIL
     Indication: COLORECTAL CANCER METASTATIC
     Dosage: 721.1 MG (BOOST) WITH 4326.8 MG (BOLUS)
     Route: 042
  5. DUROGESIC [Concomitant]
     Active Substance: FENTANYL
  6. ZOMETA [Concomitant]
     Active Substance: ZOLEDRONIC ACID
  7. DAFALGAN [Concomitant]
     Active Substance: ACETAMINOPHEN
  8. OXYNORM [Concomitant]
     Active Substance: OXYCODONE HYDROCHLORIDE
  9. STILNOCT [Concomitant]
     Active Substance: ZOLPIDEM TARTRATE
     Indication: PROPHYLAXIS
  10. LAXIDO [Concomitant]
     Active Substance: POLYETHYLENE GLYCOL 3350\POTASSIUM CHLORIDE\SODIUM BICARBONATE\SODIUM CHLORIDE
     Indication: PROPHYLAXIS
  11. OXALIPLATIN. [Suspect]
     Active Substance: OXALIPLATIN
     Indication: PRODUCT USED FOR UNKNOWN INDICATION
     Route: 065

REACTIONS (13)
  - Decreased appetite [Recovering/Resolving]
  - Nausea [Recovered/Resolved]
  - Haematuria [Recovering/Resolving]
  - Weight decreased [Recovering/Resolving]
  - Pain [Recovered/Resolved]
  - Neuropathy peripheral [Recovering/Resolving]
  - Anaemia [Recovering/Resolving]
  - Seizure [Recovered/Resolved]
  - Constipation [Recovering/Resolving]
  - Vomiting [Recovered/Resolved]
  - Transferrin saturation decreased [Recovering/Resolving]
  - Fatigue [Recovering/Resolving]
  - Dyspnoea [Recovering/Resolving]

NARRATIVE: CASE EVENT DATE: 20170926
